FAERS Safety Report 4602034-0 (Version None)
Quarter: 2005Q1

REPORT INFORMATION
  Report Type: 
  Country: None (occurrence: None)
  Receive Date: 20050201
  Receipt Date: 20040304
  Transmission Date: 20050727
  Serious: Yes (Other)
  Sender: FDA-Public Use
  Company Number: 200414567BWH

PATIENT
  Sex: Male

DRUGS (2)
  1. AVELOX [Suspect]
     Dosage: ORAL
     Route: 048
     Dates: start: 20040201
  2. ALLEGRA-D 12 HOUR [Suspect]

REACTIONS (5)
  - ANAPHYLACTIC REACTION [None]
  - BACK DISORDER [None]
  - ERYTHEMA [None]
  - PARAESTHESIA ORAL [None]
  - SWELLING FACE [None]
